FAERS Safety Report 9161879 (Version 1)
Quarter: 2013Q1

REPORT INFORMATION
  Report Type: Report from Study
  Country: US (occurrence: US)
  Receive Date: 20130314
  Receipt Date: 20130314
  Transmission Date: 20140127
  Serious: No
  Sender: FDA-Public Use
  Company Number: US-009507513-1303USA006587

PATIENT
  Sex: Male

DRUGS (4)
  1. RIBAVIRIN [Suspect]
     Indication: CHRONIC HEPATITIS C
     Dosage: DIVIDED DOSE
     Dates: start: 20120323, end: 20120820
  2. RIBAVIRIN [Suspect]
     Dosage: 600 MG, UNK
  3. BOCEPREVIR [Suspect]
     Indication: CHRONIC HEPATITIS C
     Dosage: UNK
     Dates: start: 20120420, end: 20120618
  4. PEGINTERFERON ALFA-2A [Suspect]
     Indication: CHRONIC HEPATITIS C
     Dosage: 180 MICROGRAM PER KILOGRAM, QW
     Dates: start: 20120323, end: 20120820

REACTIONS (6)
  - Headache [Unknown]
  - Chills [Recovered/Resolved]
  - Sleep disorder [Unknown]
  - Rash [Unknown]
  - Urticaria [Unknown]
  - Ulcer [Unknown]
